FAERS Safety Report 15173279 (Version 1)
Quarter: 2018Q3

REPORT INFORMATION
  Report Type: Spontaneous
  Country: DK (occurrence: DK)
  Receive Date: 20180720
  Receipt Date: 20180720
  Transmission Date: 20181010
  Serious: Yes (Other)
  Sender: FDA-Public Use
  Company Number: DK-MYLANLABS-2018M1053430

PATIENT
  Sex: Female

DRUGS (8)
  1. NORSPAN [Suspect]
     Active Substance: BUPRENORPHINE
     Indication: POSTOPERATIVE ANALGESIA
  2. OXYCONTIN [Suspect]
     Active Substance: OXYCODONE HYDROCHLORIDE
     Indication: POSTOPERATIVE ANALGESIA
     Dosage: UNK
  3. DOLOL                              /00020001/ [Suspect]
     Active Substance: ACETAMINOPHEN
     Indication: POSTOPERATIVE ANALGESIA
  4. MORFIN                             /00036301/ [Suspect]
     Active Substance: MORPHINE SULFATE
     Indication: POSTOPERATIVE ANALGESIA
  5. NOBLIGAN [Suspect]
     Active Substance: TRAMADOL HYDROCHLORIDE
     Indication: POSTOPERATIVE ANALGESIA
     Dosage: UNK
  6. TRAMADOL. [Suspect]
     Active Substance: TRAMADOL
     Indication: POSTOPERATIVE ANALGESIA
     Dosage: UNK
     Route: 065
  7. CODEINE [Suspect]
     Active Substance: CODEINE
     Indication: POSTOPERATIVE ANALGESIA
  8. OXYCODONE [Suspect]
     Active Substance: OXYCODONE
     Indication: POSTOPERATIVE ANALGESIA
     Dosage: UNK

REACTIONS (5)
  - Cardiac flutter [Unknown]
  - Peripheral coldness [Unknown]
  - Asthenia [Unknown]
  - Nausea [Unknown]
  - Tinnitus [Unknown]
